FAERS Safety Report 12428370 (Version 3)
Quarter: 2018Q1

REPORT INFORMATION
  Report Type: Spontaneous
  Country: US (occurrence: US)
  Receive Date: 20160602
  Receipt Date: 20180130
  Transmission Date: 20180508
  Serious: Yes (Other)
  Sender: FDA-Public Use
  Company Number: US-GLAXOSMITHKLINE-US2016GSK075771

PATIENT
  Sex: Female

DRUGS (5)
  1. LAMICTAL XR [Suspect]
     Active Substance: LAMOTRIGINE
     Dosage: 300 MG, U
  2. LAMICTAL XR [Suspect]
     Active Substance: LAMOTRIGINE
     Dosage: 300 MG, UNK; 100 MG XR
  3. LAMICTAL XR [Suspect]
     Active Substance: LAMOTRIGINE
     Indication: SEIZURE
     Dosage: 25 MG, U
  4. LAMICTAL XR [Suspect]
     Active Substance: LAMOTRIGINE
     Dosage: 200 MG, U
  5. KEPPRA [Suspect]
     Active Substance: LEVETIRACETAM

REACTIONS (8)
  - Seizure [Unknown]
  - Adverse event [Unknown]
  - Drug ineffective [Unknown]
  - Drug effect incomplete [Unknown]
  - Ill-defined disorder [Unknown]
  - Brain operation [Unknown]
  - Impaired driving ability [Unknown]
  - Loss of employment [Unknown]

NARRATIVE: CASE EVENT DATE: 2013
